FAERS Safety Report 7826661-2 (Version None)
Quarter: 2011Q4

REPORT INFORMATION
  Report Type: 
  Country: None (occurrence: None)
  Receive Date: 20111020
  Receipt Date: 20110926
  Transmission Date: 20120403
  Serious: No
  Sender: FDA-Public Use
  Company Number: US-MYLANLABS-2011S1020310

PATIENT
  Age: 41 Year
  Sex: Female

DRUGS (1)
  1. BUPROPION HYDROCHLORIDE [Suspect]
     Indication: DEPRESSION
     Dosage: 1/2 TABLET QAM
     Route: 048
     Dates: start: 20110918, end: 20110923

REACTIONS (4)
  - PRURITUS GENERALISED [None]
  - BACK PAIN [None]
  - DRUG ADMINISTRATION ERROR [None]
  - CONSTIPATION [None]
